FAERS Safety Report 8024035-5 (Version None)
Quarter: 2012Q1

REPORT INFORMATION
  Report Type: 
  Country: None (occurrence: None)
  Receive Date: 20120105
  Receipt Date: 20111230
  Transmission Date: 20120608
  Serious: Yes (Hospitalization)
  Sender: FDA-Public Use
  Company Number: US-BRISTOL-MYERS SQUIBB COMPANY-15654874

PATIENT
  Age: 67 Year
  Sex: Male

DRUGS (6)
  1. BLINDED: SAXAGLIPTIN [Suspect]
     Indication: TYPE 2 DIABETES MELLITUS
     Dosage: LAST DOSE ON 29MAR2011,INTERRUPT ON 29MAR2011.
     Dates: start: 20110301
  2. METFORMIN HCL [Suspect]
     Indication: TYPE 2 DIABETES MELLITUS
     Dates: end: 20110329
  3. ACTOS [Suspect]
     Indication: TYPE 2 DIABETES MELLITUS
     Dates: end: 20110329
  4. BENAZEPRIL HYDROCHLORIDE [Suspect]
  5. ASPIRIN [Concomitant]
  6. BLINDED: PLACEBO [Suspect]
     Indication: TYPE 2 DIABETES MELLITUS
     Dosage: LAST DOSE ON 29MAR2011,INTERRUPT ON 29MAR2011.
     Dates: start: 20110301

REACTIONS (1)
  - RENAL FAILURE ACUTE [None]
